FAERS Safety Report 7141901-3 (Version None)
Quarter: 2010Q4

REPORT INFORMATION
  Report Type: 
  Country: None (occurrence: None)
  Receive Date: 20101207
  Receipt Date: 20101122
  Transmission Date: 20110411
  Serious: Yes (Hospitalization)
  Sender: FDA-Public Use
  Company Number: US-ROCHE-744012

PATIENT
  Sex: Male
  Weight: 74.8 kg

DRUGS (10)
  1. KLONOPIN [Suspect]
     Indication: ANXIETY
     Dosage: FORM: PILLS; INDICATION REPORTED AS ^ANXIUOS, ETC.^
     Route: 048
  2. KLONOPIN [Suspect]
     Dosage: OVERDOSE
     Route: 048
  3. ABILIFY [Suspect]
     Route: 065
  4. METFORMIN [Concomitant]
  5. PROPRANOLOL [Concomitant]
  6. ZOCOR [Concomitant]
  7. BACTRIM [Concomitant]
  8. DEPAKOTE [Concomitant]
  9. LISINOPRIL [Concomitant]
  10. ASPIRIN [Concomitant]

REACTIONS (4)
  - GAIT DISTURBANCE [None]
  - OVERDOSE [None]
  - RENAL DISORDER [None]
  - TREMOR [None]
